FAERS Safety Report 9828100 (Version 1)
Quarter: 2014Q1

REPORT INFORMATION
  Report Type: Report from Study
  Country: US (occurrence: US)
  Receive Date: 20140117
  Receipt Date: 20140117
  Transmission Date: 20141002
  Serious: Yes (Other)
  Sender: FDA-Public Use
  Company Number: US-ABBVIE-14P-163-1188080-00

PATIENT
  Sex: Female
  Weight: 65.83 kg

DRUGS (14)
  1. HUMIRA [Suspect]
     Indication: PSORIASIS
     Route: 058
     Dates: start: 200910
  2. HUMIRA [Suspect]
     Indication: PSORIATIC ARTHROPATHY
     Dates: start: 201203, end: 201211
  3. HUMIRA [Suspect]
     Dates: start: 201305, end: 201308
  4. HYDROCODONE WITH TYLENOL [Concomitant]
     Indication: ARTHRALGIA
  5. HYDROCODONE WITH TYLENOL [Concomitant]
     Indication: PSORIATIC ARTHROPATHY
  6. HYDROCODONE WITH TYLENOL [Concomitant]
     Indication: PAIN
  7. FENTANYL [Concomitant]
     Indication: ARTHRALGIA
     Dosage: PATCH
  8. FENTANYL [Concomitant]
     Indication: PSORIATIC ARTHROPATHY
  9. FENTANYL [Concomitant]
     Indication: PAIN
  10. LISINOPRIL [Concomitant]
     Indication: HYPERTENSION
  11. PROZAC [Concomitant]
     Indication: DEPRESSION
  12. UNKNOWN [Concomitant]
     Indication: FIBROMYALGIA
  13. CELEBREX [Concomitant]
     Indication: PSORIATIC ARTHROPATHY
  14. ENBREL [Concomitant]
     Indication: PRODUCT USED FOR UNKNOWN INDICATION
     Dates: start: 201301, end: 201303

REACTIONS (7)
  - Urinary retention [Recovered/Resolved]
  - Sarcoma [Recovered/Resolved]
  - Vulval disorder [Recovered/Resolved]
  - Hypertonic bladder [Recovered/Resolved]
  - Psoriasis [Not Recovered/Not Resolved]
  - Psoriatic arthropathy [Not Recovered/Not Resolved]
  - Blood cholesterol increased [Recovered/Resolved]
